FAERS Safety Report 6906796-9 (Version None)
Quarter: 2010Q3

REPORT INFORMATION
  Report Type: 
  Country: None (occurrence: None)
  Receive Date: 20100804
  Receipt Date: 20100713
  Transmission Date: 20110219
  Serious: Yes (Death, Hospitalization)
  Sender: FDA-Public Use
  Company Number: PHHO2010ES09816

PATIENT
  Sex: Male
  Weight: 76.5 kg

DRUGS (2)
  1. AFINITOR [Suspect]
     Indication: METASTATIC RENAL CELL CARCINOMA
     Dosage: 10 MG
     Route: 048
     Dates: start: 20091210, end: 20100225
  2. SORAFENIB [Concomitant]

REACTIONS (3)
  - ABDOMINAL PAIN [None]
  - DEATH [None]
  - MALIGNANT NEOPLASM PROGRESSION [None]
